FAERS Safety Report 7476839-5 (Version None)
Quarter: 2011Q2

REPORT INFORMATION
  Report Type: 
  Country: None (occurrence: None)
  Receive Date: 20110512
  Receipt Date: 20110309
  Transmission Date: 20111010
  Serious: Yes (Other)
  Sender: FDA-Public Use
  Company Number: PHHY2009DE47452

PATIENT
  Sex: Female
  Weight: 57 kg

DRUGS (10)
  1. DIBENZYRAN [Concomitant]
     Dosage: 0.5 MG, 2/3 PER DAY
     Route: 048
  2. SAB SIMPLEX [Concomitant]
  3. SANDOSTATIN LAR [Suspect]
     Indication: PHAEOCHROMOCYTOMA MALIGNANT
     Dosage: 10 MG, EVERY 14 DAYS
     Route: 030
     Dates: start: 20030101
  4. BELOC ZOK [Concomitant]
     Route: 048
  5. BEPANTHEN [Concomitant]
  6. SANDOSTATIN LAR [Suspect]
     Dosage: 20 MG, QMO
  7. GLANDOSANE [Concomitant]
  8. LEVOTHYROXINE SODIUM [Concomitant]
     Dosage: 25 UG,
  9. PANKREATIN [Concomitant]
  10. IBEROGAST [Concomitant]

REACTIONS (6)
  - ABDOMINAL PAIN [None]
  - MUSCULAR WEAKNESS [None]
  - GASTROINTESTINAL DISORDER [None]
  - WEIGHT DECREASED [None]
  - DIARRHOEA [None]
  - VITAMIN B12 DEFICIENCY [None]
